FAERS Safety Report 7653290-6 (Version None)
Quarter: 2011Q3

REPORT INFORMATION
  Report Type: 
  Country: None (occurrence: None)
  Receive Date: 20110803
  Receipt Date: 20110720
  Transmission Date: 20111222
  Serious: Yes (Hospitalization, Other)
  Sender: FDA-Public Use
  Company Number: US-ELI_LILLY_AND_COMPANY-US201106000475

PATIENT
  Sex: Female
  Weight: 58.9 kg

DRUGS (7)
  1. DYAZIDE [Concomitant]
  2. FOSAMAX [Concomitant]
  3. INDERAL [Concomitant]
  4. VESICARE [Concomitant]
  5. FERROUS GLUCONATE [Concomitant]
  6. LOMOTIL [Concomitant]
  7. FORTEO [Suspect]
     Indication: OSTEOPOROSIS
     Dosage: 20 UG, QD
     Route: 058
     Dates: end: 20110412

REACTIONS (2)
  - DEVICE FAILURE [None]
  - HIP FRACTURE [None]
